FAERS Safety Report 7833338-6 (Version None)
Quarter: 2011Q4

REPORT INFORMATION
  Report Type: 
  Country: None (occurrence: None)
  Receive Date: 20111024
  Receipt Date: 20111010
  Transmission Date: 20120403
  Serious: Yes (Other)
  Sender: FDA-Public Use
  Company Number: GB-AMGEN-GBRCT2011053555

PATIENT
  Age: 10 Year
  Sex: Male
  Weight: 33.5 kg

DRUGS (7)
  1. ETANERCEPT [Suspect]
     Indication: PRODUCT USED FOR UNKNOWN INDICATION
     Dosage: 12.5 MG, 2 TIMES/WK
     Dates: start: 20110101
  2. METHOTREXATE SODIUM [Suspect]
     Indication: POLYARTHRITIS
     Dosage: 15 MG, WEEKLY
     Route: 058
     Dates: start: 20100719, end: 20110105
  3. PIROXICAM [Concomitant]
     Dosage: 1/2 TAB ONCE DAILY
     Route: 048
     Dates: start: 20100901
  4. METHOTREXATE SODIUM [Suspect]
     Indication: RHESUS ANTIBODIES NEGATIVE
     Dosage: 12.5 MG, 2X/WEEK
     Dates: start: 20110131
  5. ACETAMINOPHEN [Concomitant]
     Dosage: UNK
     Route: 048
     Dates: start: 20100401
  6. FOLIC ACID [Concomitant]
     Dosage: UNK
     Route: 048
     Dates: start: 20100901
  7. IBUPROFEN [Concomitant]
     Dosage: UNK
     Route: 048
     Dates: start: 20100401

REACTIONS (1)
  - JUVENILE ARTHRITIS [None]
